FAERS Safety Report 19087591 (Version 1)
Quarter: 2021Q2

REPORT INFORMATION
  Report Type: Spontaneous
  Country: US (occurrence: US)
  Receive Date: 20210402
  Receipt Date: 20210402
  Transmission Date: 20210717
  Serious: Yes (Other)
  Sender: FDA-Public Use
  Company Number: US-TEVA-2021-US-1897016

PATIENT
  Age: 61 Year
  Sex: Female
  Weight: 47.67 kg

DRUGS (10)
  1. MIRTAZAPINE 15 MG [Concomitant]
     Active Substance: MIRTAZAPINE
  2. ALPRAZOLAM 0.25 [Concomitant]
     Active Substance: ALPRAZOLAM
  3. CHLORZOXAZONE 250 MG [Concomitant]
  4. METOCLOPRAMIDE 10 MG [Concomitant]
     Active Substance: METOCLOPRAMIDE
  5. OMEPRAZOLE 10 MG [Concomitant]
     Active Substance: OMEPRAZOLE
  6. AMITRIPTYLINE 100 MG [Concomitant]
  7. HYDROXYZINE 10 MG [Concomitant]
  8. LEXAPRO [Concomitant]
     Active Substance: ESCITALOPRAM OXALATE
  9. AUSTEDO [Suspect]
     Active Substance: DEUTETRABENAZINE
     Dosage: 6 MILLIGRAM DAILY;
     Route: 048
     Dates: start: 20210225
  10. FAMOTIDINE 10 MG [Concomitant]

REACTIONS (4)
  - Dementia Alzheimer^s type [Recovered/Resolved]
  - Dysarthria [Recovered/Resolved]
  - Disorganised speech [Recovered/Resolved]
  - Amnesia [Recovered/Resolved]

NARRATIVE: CASE EVENT DATE: 20210228
